FAERS Safety Report 20784364 (Version 1)
Quarter: 2022Q2

REPORT INFORMATION
  Report Type: Spontaneous
  Country: CN (occurrence: CN)
  Receive Date: 20220504
  Receipt Date: 20220504
  Transmission Date: 20220721
  Serious: Yes (Other)
  Sender: FDA-Public Use
  Company Number: CN-GE HEALTHCARE-2022CSU002884

PATIENT
  Age: 46 Year
  Sex: Female
  Weight: 51.5 kg

DRUGS (3)
  1. VISIPAQUE [Suspect]
     Active Substance: IODIXANOL
     Indication: Computerised tomogram abdomen
     Dosage: 77ML (1.5 ML/KG), AT THE RATE OF 2.5ML/SEC, ONCE
     Route: 042
     Dates: start: 20200426, end: 20200426
  2. VISIPAQUE [Suspect]
     Active Substance: IODIXANOL
     Indication: Ovarian neoplasm
  3. VISIPAQUE [Suspect]
     Active Substance: IODIXANOL
     Indication: Skin test
     Dosage: UNK UNK, SINGLE
     Route: 023
     Dates: start: 20200426, end: 20200426

REACTIONS (2)
  - Thrombocytopenia [Recovered/Resolved]
  - Off label use [Recovered/Resolved]

NARRATIVE: CASE EVENT DATE: 20200426
